FAERS Safety Report 8429203-6 (Version None)
Quarter: 2012Q2

REPORT INFORMATION
  Report Type: 
  Country: None (occurrence: None)
  Receive Date: 20120612
  Receipt Date: 20120605
  Transmission Date: 20120825
  Serious: Yes (Other)
  Sender: FDA-Public Use
  Company Number: PHHY2012IT049242

PATIENT
  Sex: Female

DRUGS (2)
  1. FEMARA [Concomitant]
     Dosage: 2.5 MG, UNK
     Route: 065
  2. ZOMETA [Suspect]
     Indication: MULTIPLE MYELOMA
     Dosage: 4 MG, QMO
     Route: 042
     Dates: start: 20090101, end: 20101231

REACTIONS (2)
  - OSTEONECROSIS OF JAW [None]
  - PRIMARY SEQUESTRUM [None]
